FAERS Safety Report 24292200 (Version 1)
Quarter: 2024Q3

REPORT INFORMATION
  Report Type: Spontaneous
  Country: US (occurrence: None)
  Receive Date: 20240906
  Receipt Date: 20240906
  Transmission Date: 20241016
  Serious: No
  Sender: DOMPE FARMACEUTICI
  Company Number: US-FARMAPROD-202307-2215

PATIENT
  Sex: Male
  Weight: 63.5 kg

DRUGS (6)
  1. OXERVATE [Suspect]
     Active Substance: CENEGERMIN-BKBJ
     Indication: Neurotrophic keratopathy
     Route: 047
     Dates: start: 20230711
  2. ARTIFICIAL TEARS [Concomitant]
     Dosage: 0.1%-0.3%
  3. OFLOXACIN [Concomitant]
     Active Substance: OFLOXACIN
  4. ACYCLOVIR [Concomitant]
     Active Substance: ACYCLOVIR
  5. PREDNISOLONE ACETATE [Concomitant]
     Active Substance: PREDNISOLONE ACETATE
  6. VALACYCLOVIR [Concomitant]
     Active Substance: VALACYCLOVIR HYDROCHLORIDE

REACTIONS (3)
  - Eye pain [Unknown]
  - Lacrimation increased [Unknown]
  - Headache [Unknown]
